FAERS Safety Report 7199294-1 (Version None)
Quarter: 2010Q4

REPORT INFORMATION
  Report Type: 
  Country: None (occurrence: None)
  Receive Date: 20101223
  Receipt Date: 20101223
  Transmission Date: 20110411
  Serious: Yes (Hospitalization, Other)
  Sender: FDA-Public Use
  Company Number: None

PATIENT
  Sex: Female
  Weight: 70.3075 kg

DRUGS (1)
  1. ACETAMINOPHEN W/ PROPOXYPHENE HCL [Suspect]
     Indication: OSTEOARTHRITIS
     Dosage: 1 TABLET 4 TO 6 HRS
     Dates: start: 20101209, end: 20101211

REACTIONS (4)
  - ABDOMINAL PAIN UPPER [None]
  - CHEST PAIN [None]
  - DIZZINESS [None]
  - LIVER DISORDER [None]
